FAERS Safety Report 17573271 (Version 1)
Quarter: 2020Q1

REPORT INFORMATION
  Report Type: Report from Study
  Country: CA (occurrence: CA)
  Receive Date: 20200323
  Receipt Date: 20200323
  Transmission Date: 20200409
  Serious: Yes (Other)
  Sender: FDA-Public Use
  Company Number: CA-JNJFOC-20200320786

PATIENT
  Age: 70 Year
  Sex: Female
  Weight: 94.5 kg

DRUGS (1)
  1. SIMPONI [Suspect]
     Active Substance: GOLIMUMAB
     Indication: RHEUMATOID ARTHRITIS
     Route: 042

REACTIONS (5)
  - Type 2 diabetes mellitus [Recovering/Resolving]
  - Bronchitis [Recovering/Resolving]
  - Vision blurred [Recovering/Resolving]
  - Asthma [Recovering/Resolving]
  - Rheumatoid arthritis [Recovering/Resolving]

NARRATIVE: CASE EVENT DATE: 201912
